FAERS Safety Report 7688810-9 (Version None)
Quarter: 2011Q3

REPORT INFORMATION
  Report Type: 
  Country: None (occurrence: None)
  Receive Date: 20110817
  Receipt Date: 20110812
  Transmission Date: 20111222
  Serious: Yes (Hospitalization)
  Sender: FDA-Public Use
  Company Number: TW-ABBOTT-11P-153-0734452-00

PATIENT
  Age: 9 Year

DRUGS (4)
  1. TOPIRAMATE [Concomitant]
     Indication: PRODUCT USED FOR UNKNOWN INDICATION
     Dates: end: 20110518
  2. LEVETIRACETAM [Concomitant]
     Indication: PRODUCT USED FOR UNKNOWN INDICATION
     Dates: end: 20110518
  3. DEPAKENE [Suspect]
     Route: 042
     Dates: start: 20110512, end: 20110518
  4. DEPAKENE [Suspect]
     Indication: EPILEPSY
     Route: 042
     Dates: start: 20110417, end: 20110502

REACTIONS (2)
  - SHOCK [None]
  - DRUG RASH WITH EOSINOPHILIA AND SYSTEMIC SYMPTOMS [None]
